FAERS Safety Report 18254678 (Version 5)
Quarter: 2022Q3

REPORT INFORMATION
  Report Type: Spontaneous
  Country: FR (occurrence: FR)
  Receive Date: 20200910
  Receipt Date: 20220906
  Transmission Date: 20221027
  Serious: Yes (Other)
  Sender: FDA-Public Use
  Company Number: FR-SA-2020SA205096

PATIENT
  Age: 17 Year
  Sex: Male
  Weight: 45.6 kg

DRUGS (10)
  1. IMATINIB [Suspect]
     Active Substance: IMATINIB
     Indication: Crohn^s disease
     Dosage: 400 MG, QD
     Route: 048
  2. TACROLIMUS [Suspect]
     Active Substance: TACROLIMUS
     Indication: Crohn^s disease
     Dosage: UNK
     Route: 065
  3. MESALAMINE [Suspect]
     Active Substance: MESALAMINE
     Indication: Crohn^s disease
     Dosage: UNK
     Route: 065
  4. AZATHIOPRINE [Suspect]
     Active Substance: AZATHIOPRINE
     Indication: Crohn^s disease
     Dosage: UNK
     Route: 065
  5. AZATHIOPRINE [Suspect]
     Active Substance: AZATHIOPRINE
     Dosage: UNK
     Route: 065
  6. ADALIMUMAB [Suspect]
     Active Substance: ADALIMUMAB
     Indication: Crohn^s disease
     Dosage: UNK
     Route: 065
  7. THALIDOMIDE [Suspect]
     Active Substance: THALIDOMIDE
     Indication: Crohn^s disease
     Dosage: UNK
     Route: 065
  8. INFLIXIMAB [Suspect]
     Active Substance: INFLIXIMAB
     Indication: Crohn^s disease
     Dosage: UNK
     Route: 065
  9. MESALAZINE AKP [Concomitant]
     Indication: Crohn^s disease
     Dosage: UNK
     Route: 065
  10. MESALAZINE AKP [Concomitant]
     Dosage: UNK
     Route: 065

REACTIONS (10)
  - Crohn^s disease [Unknown]
  - Drug ineffective [Unknown]
  - Varicella zoster virus infection [Unknown]
  - Off label use [Unknown]
  - Infection reactivation [Unknown]
  - Nausea [Recovered/Resolved]
  - Diarrhoea [Recovered/Resolved]
  - Drug intolerance [Recovered/Resolved]
  - Therapy non-responder [Unknown]
  - Intentional product misuse [Unknown]
